FAERS Safety Report 5044661-5 (Version None)
Quarter: 2006Q3

REPORT INFORMATION
  Report Type: 
  Country: None (occurrence: None)
  Receive Date: 20060706
  Receipt Date: 20060626
  Transmission Date: 20061208
  Serious: Yes (Hospitalization, Disabling)
  Sender: FDA-Public Use
  Company Number: CZ-ABBOTT-06P-217-0336909-00

PATIENT
  Sex: Female
  Weight: 66.5 kg

DRUGS (12)
  1. ZEMPLAR [Suspect]
     Indication: HYPERPARATHYROIDISM
     Route: 042
     Dates: start: 20060405
  2. ENALAPRIL [Concomitant]
     Indication: HYPERTENSION
     Route: 048
  3. FUROSEMIDE [Concomitant]
     Indication: HYPERTENSION
     Route: 048
  4. ASCORUTIN [Concomitant]
     Indication: RENAL FAILURE CHRONIC
     Route: 048
  5. ACETYLSALICYLIC ACID SRT [Concomitant]
     Indication: PLATELET AGGREGATION INHIBITION
     Route: 048
  6. NITRENDIPINE [Concomitant]
     Indication: HYPERTENSION
     Route: 048
  7. TELMISARTAN [Concomitant]
     Indication: HYPERTENSION
     Route: 048
  8. CYNT [Concomitant]
     Indication: HYPERTENSION
     Route: 048
  9. SEVELAMER HYDROCHLORIDE [Concomitant]
     Indication: RENAL FAILURE CHRONIC
     Route: 048
  10. CALCIUM CARBONATE [Concomitant]
     Indication: RENAL FAILURE CHRONIC
     Route: 048
  11. SULODEXIDE [Concomitant]
     Indication: MYOCARDIAL ISCHAEMIA
     Route: 048
  12. CAPIVEN [Concomitant]
     Indication: VENOUS INSUFFICIENCY
     Route: 048

REACTIONS (6)
  - DISORIENTATION [None]
  - HEMIPLEGIA [None]
  - ISCHAEMIC STROKE [None]
  - PARESIS [None]
  - SYNCOPE [None]
  - VERTIGO [None]
